FAERS Safety Report 7157670-7 (Version None)
Quarter: 2010Q4

REPORT INFORMATION
  Report Type: 
  Country: None (occurrence: None)
  Receive Date: 20101214
  Receipt Date: 20100315
  Transmission Date: 20110411
  Serious: Yes (Other)
  Sender: FDA-Public Use
  Company Number: US-ASTRAZENECA-2010SE11077

PATIENT

DRUGS (2)
  1. CRESTOR [Suspect]
     Route: 048
     Dates: end: 20100201
  2. TRILIPIX [Suspect]
     Route: 048
     Dates: end: 20100201

REACTIONS (1)
  - BLOOD CREATINE PHOSPHOKINASE INCREASED [None]
